FAERS Safety Report 23355679 (Version 1)
Quarter: 2024Q1

REPORT INFORMATION
  Report Type: Spontaneous
  Country: JP (occurrence: JP)
  Receive Date: 20240102
  Receipt Date: 20240102
  Transmission Date: 20240410
  Serious: Yes (Hospitalization)
  Sender: FDA-Public Use
  Company Number: JP-NOVOPROD-1156065

PATIENT
  Sex: Male

DRUGS (1)
  1. ESPEROCT [Suspect]
     Active Substance: ANTIHEMOPHILIC FACTOR, HUMAN RECOMBINANT
     Indication: Haemophilia
     Dosage: UNK
     Route: 042

REACTIONS (1)
  - Gastric ulcer [Recovered/Resolved]
